FAERS Safety Report 11531459 (Version 1)
Quarter: 2015Q3

REPORT INFORMATION
  Report Type: Spontaneous
  Country: US (occurrence: US)
  Receive Date: 20150921
  Receipt Date: 20150921
  Transmission Date: 20151125
  Serious: Yes (Other)
  Sender: FDA-Public Use
  Company Number: US-TAKEDA-TPA2013A05450

PATIENT

DRUGS (1)
  1. ACTOS [Suspect]
     Active Substance: PIOGLITAZONE HYDROCHLORIDE
     Indication: TYPE 2 DIABETES MELLITUS
     Dosage: 15 MG, UNK
     Route: 048
     Dates: start: 20020921, end: 20070326

REACTIONS (4)
  - Prostate cancer [Unknown]
  - Bladder transitional cell carcinoma stage I [Unknown]
  - Skin cancer [Unknown]
  - Nephrolithiasis [Unknown]

NARRATIVE: CASE EVENT DATE: 20030701
